FAERS Safety Report 5614102-5 (Version None)
Quarter: 2008Q1

REPORT INFORMATION
  Report Type: 
  Country: None (occurrence: None)
  Receive Date: 20080130
  Receipt Date: 20080117
  Transmission Date: 20080703
  Serious: Yes (Hospitalization, Other)
  Sender: FDA-Public Use
  Company Number: 100#08#2008-00413

PATIENT
  Age: 56 Year
  Sex: Male

DRUGS (2)
  1. METFORMIN HCL [Suspect]
     Indication: TYPE 2 DIABETES MELLITUS
     Dosage: 250 MG AFTER LUNCH AND 500 MG AFTER DINNER
  2. ENALAPRIL (TALBETS) (ENALAPRIL, ENALAPRIL MALEATE) [Suspect]
     Indication: ESSENTIAL HYPERTENSION
     Dosage: 5 MG AFTER BREAKFAST

REACTIONS (7)
  - AGITATION [None]
  - CONFUSIONAL STATE [None]
  - DISORIENTATION [None]
  - DRUG INTERACTION [None]
  - HYPOGLYCAEMIA [None]
  - IRRITABILITY [None]
  - SELF-MEDICATION [None]
